FAERS Safety Report 25131942 (Version 1)
Quarter: 2025Q1

REPORT INFORMATION
  Report Type: Spontaneous
  Country: US (occurrence: US)
  Receive Date: 20250327
  Receipt Date: 20250327
  Transmission Date: 20250409
  Serious: No
  Sender: JOHNSON AND JOHNSON
  Company Number: US-JNJFOC-20250338981

PATIENT
  Age: 64 Year

DRUGS (1)
  1. TREMFYA [Suspect]
     Active Substance: GUSELKUMAB
     Indication: Psoriatic arthropathy
     Route: 065
     Dates: start: 20250313

REACTIONS (4)
  - Product storage error [Unknown]
  - Accidental exposure to product [Unknown]
  - Memory impairment [Unknown]
  - Inappropriate schedule of product administration [Unknown]
